FAERS Safety Report 4635076-X (Version None)
Quarter: 2005Q2

REPORT INFORMATION
  Report Type: 
  Country: None (occurrence: None)
  Receive Date: 20050414
  Receipt Date: 20050405
  Transmission Date: 20051028
  Serious: Yes (Other)
  Sender: FDA-Public Use
  Company Number: US-ROCHE-401005

PATIENT
  Age: 57 Year
  Sex: Female
  Weight: 91.6 kg

DRUGS (8)
  1. PEGASYS [Suspect]
     Indication: HEPATITIS C
     Route: 058
     Dates: start: 20041209, end: 20050305
  2. PEGASYS [Suspect]
     Route: 058
     Dates: start: 20050319, end: 20050406
  3. COPEGUS [Suspect]
     Indication: HEPATITIS C
     Route: 048
     Dates: start: 20041209, end: 20050305
  4. COPEGUS [Suspect]
     Route: 048
     Dates: start: 20050319, end: 20050406
  5. LOTENSIN [Concomitant]
     Indication: HYPERTENSION
     Route: 048
  6. ZIAC [Concomitant]
  7. PRAVACHOL [Concomitant]
  8. PREMARIN [Concomitant]
     Indication: HORMONE REPLACEMENT THERAPY

REACTIONS (6)
  - CONJUNCTIVITIS [None]
  - LUNG ABSCESS [None]
  - PNEUMONIA [None]
  - PYREXIA [None]
  - RASH [None]
  - VOMITING [None]
